FAERS Safety Report 9976052 (Version 1)
Quarter: 2014Q1

REPORT INFORMATION
  Report Type: Spontaneous
  Country: JP (occurrence: JP)
  Receive Date: 20140306
  Receipt Date: 20140306
  Transmission Date: 20141002
  Serious: Yes (Other)
  Sender: FDA-Public Use
  Company Number: PHHY2014JP024806

PATIENT
  Age: 20 Year
  Sex: Male

DRUGS (8)
  1. URSODEOXYCHOLIC ACID [Suspect]
     Indication: PROPHYLAXIS
  2. MYCOPHENOLATE MOFETIL [Suspect]
     Indication: PROPHYLAXIS AGAINST GRAFT VERSUS HOST DISEASE
     Dosage: 25 MG/KG, TID
     Route: 048
  3. FLUCONAZOLE [Suspect]
     Indication: PROPHYLAXIS
  4. PREDNISOLONE [Suspect]
     Dosage: 1 MG/KG, UNK
  5. TACROLIMUS [Suspect]
     Indication: PROPHYLAXIS AGAINST GRAFT VERSUS HOST DISEASE
     Dosage: 1.5 MG/DAY (0.03 MG/KG/DAY)
     Route: 041
  6. TACROLIMUS [Suspect]
     Dosage: 1.2 MG/DAY
     Route: 041
  7. CYCLOPHOSPHAMIDE [Suspect]
     Dosage: 120 MG/KG, UNK
  8. GRANULOCYTE COLONY-STIMULATING FACTOR NOS [Concomitant]

REACTIONS (7)
  - Inappropriate antidiuretic hormone secretion [Recovered/Resolved]
  - Hyponatraemia [Recovered/Resolved]
  - Pre-engraftment immune reaction [Recovered/Resolved]
  - Pyrexia [Recovered/Resolved]
  - Rash [Recovered/Resolved]
  - Human herpesvirus 6 infection [Recovered/Resolved]
  - Weight increased [Unknown]
